FAERS Safety Report 8123957-4 (Version None)
Quarter: 2012Q1

REPORT INFORMATION
  Report Type: 
  Country: None (occurrence: None)
  Receive Date: 20120209
  Receipt Date: 20120202
  Transmission Date: 20120608
  Serious: Yes (Hospitalization, Other)
  Sender: FDA-Public Use
  Company Number: JP-JNJFOC-20110808254

PATIENT
  Sex: Male
  Weight: 56 kg

DRUGS (19)
  1. DOXORUBICIN HCL [Suspect]
     Route: 042
  2. BROTIZOLAM [Concomitant]
     Indication: PRODUCT USED FOR UNKNOWN INDICATION
     Route: 048
  3. RABEPRAZOLE SODIUM [Concomitant]
     Indication: PRODUCT USED FOR UNKNOWN INDICATION
     Route: 048
  4. CEFAZOLIN SODIUM [Concomitant]
     Indication: PRODUCT USED FOR UNKNOWN INDICATION
     Route: 048
     Dates: end: 20101222
  5. RAMELTEON [Concomitant]
     Indication: VOMITING
     Route: 042
     Dates: start: 20100805, end: 20100805
  6. VALGANCICLOVIR [Concomitant]
     Indication: CYTOMEGALOVIRUS CHORIORETINITIS
     Route: 065
  7. DOXORUBICIN HCL [Suspect]
     Indication: KAPOSI'S SARCOMA AIDS RELATED
     Route: 042
     Dates: start: 20100805, end: 20100805
  8. FOSCAVIR [Concomitant]
     Indication: CYTOMEGALOVIRUS CHORIORETINITIS
     Route: 042
     Dates: start: 20100805, end: 20100816
  9. DOXORUBICIN HCL [Suspect]
     Route: 042
     Dates: start: 20101130, end: 20101130
  10. DOXORUBICIN HCL [Suspect]
     Route: 042
     Dates: start: 20101221, end: 20101221
  11. ISENTRESS [Concomitant]
     Indication: HIV INFECTION
     Route: 048
     Dates: start: 20100629
  12. LITHIUM CARBONATE [Concomitant]
     Indication: PRODUCT USED FOR UNKNOWN INDICATION
     Route: 048
  13. TRUVADA [Concomitant]
     Indication: HIV INFECTION
     Route: 048
     Dates: start: 20100624
  14. FLAGYL [Concomitant]
     Indication: PRODUCT USED FOR UNKNOWN INDICATION
     Route: 048
     Dates: end: 20100806
  15. DECADRON [Concomitant]
     Indication: INFUSION RELATED REACTION
     Route: 042
     Dates: start: 20100805, end: 20100805
  16. DOXORUBICIN HCL [Suspect]
     Route: 042
     Dates: start: 20101109, end: 20101109
  17. AMOBAN [Concomitant]
     Indication: PRODUCT USED FOR UNKNOWN INDICATION
     Route: 048
  18. DOXORUBICIN HCL [Suspect]
     Route: 042
     Dates: start: 20110125, end: 20110125
  19. SODIUM BICARBONATE [Concomitant]
     Indication: PRODUCT USED FOR UNKNOWN INDICATION
     Route: 049

REACTIONS (7)
  - PYREXIA [None]
  - FLUSHING [None]
  - VOMITING [None]
  - CYTOMEGALOVIRUS CHORIORETINITIS [None]
  - BLOOD PRESSURE SYSTOLIC DECREASED [None]
  - CONDITION AGGRAVATED [None]
  - INFUSION RELATED REACTION [None]
